FAERS Safety Report 15756790 (Version 1)
Quarter: 2018Q4

REPORT INFORMATION
  Report Type: Spontaneous
  Country: US (occurrence: US)
  Receive Date: 20181223
  Receipt Date: 20181223
  Transmission Date: 20190205
  Serious: No
  Sender: FDA-Public Use
  Company Number: None

PATIENT
  Age: 50 Year
  Sex: Female
  Weight: 72.9 kg

DRUGS (18)
  1. GABAPENTIN. [Concomitant]
     Active Substance: GABAPENTIN
  2. MELOXICAM. [Concomitant]
     Active Substance: MELOXICAM
  3. VITAMIN D [Concomitant]
     Active Substance: CHOLECALCIFEROL
  4. MEMANTINE. [Concomitant]
     Active Substance: MEMANTINE
  5. AMBIEN [Concomitant]
     Active Substance: ZOLPIDEM TARTRATE
  6. DHE/ MIGRANAL [Concomitant]
  7. TORADOL [Concomitant]
     Active Substance: KETOROLAC TROMETHAMINE
  8. XOPENEX [Concomitant]
     Active Substance: LEVALBUTEROL HYDROCHLORIDE
  9. ASMANEX [Concomitant]
     Active Substance: MOMETASONE FUROATE
  10. AIMOVIG [Suspect]
     Active Substance: ERENUMAB-AOOE
     Indication: PAIN
     Dosage: ?          QUANTITY:2 INJECTION(S);OTHER FREQUENCY:PER MONTH;?
     Route: 058
     Dates: start: 20180921, end: 20181116
  11. SYNTHROID [Concomitant]
     Active Substance: LEVOTHYROXINE SODIUM
  12. ZOFRAN [Concomitant]
     Active Substance: ONDANSETRON HYDROCHLORIDE
  13. FLONASE [Concomitant]
     Active Substance: FLUTICASONE PROPIONATE
  14. ZADITOR [Concomitant]
     Active Substance: KETOTIFEN FUMARATE
  15. LAMICTAL [Concomitant]
     Active Substance: LAMOTRIGINE
  16. AIMOVIG [Suspect]
     Active Substance: ERENUMAB-AOOE
     Indication: MIGRAINE WITH AURA
     Dosage: ?          QUANTITY:2 INJECTION(S);OTHER FREQUENCY:PER MONTH;?
     Route: 058
     Dates: start: 20180921, end: 20181116
  17. ZANTAC [Concomitant]
     Active Substance: RANITIDINE HYDROCHLORIDE
  18. MEDICAL MARIJUANA/CBD [Concomitant]

REACTIONS (7)
  - Arthralgia [None]
  - Balance disorder [None]
  - Decreased appetite [None]
  - Asthenia [None]
  - Lethargy [None]
  - Constipation [None]
  - Dysgeusia [None]

NARRATIVE: CASE EVENT DATE: 20180922
